FAERS Safety Report 16074502 (Version 1)
Quarter: 2019Q1

REPORT INFORMATION
  Report Type: Spontaneous
  Country: US (occurrence: US)
  Receive Date: 20190314
  Receipt Date: 20190314
  Transmission Date: 20190418
  Serious: No
  Sender: FDA-Public Use
  Company Number: US-ACTELION-A-US2019-186799

PATIENT
  Sex: Female

DRUGS (4)
  1. WARFARIN [Concomitant]
     Active Substance: WARFARIN
  2. UPTRAVI [Suspect]
     Active Substance: SELEXIPAG
     Indication: PULMONARY ARTERIAL HYPERTENSION
     Dosage: 1000 UNK, BID
     Route: 048
  3. ADCIRCA [Concomitant]
     Active Substance: TADALAFIL
  4. TRACLEER [Concomitant]
     Active Substance: BOSENTAN
     Indication: PULMONARY ARTERIAL HYPERTENSION

REACTIONS (1)
  - Pain [Unknown]
